FAERS Safety Report 23649699 (Version 1)
Quarter: 2024Q1

REPORT INFORMATION
  Report Type: Spontaneous
  Country: CN (occurrence: CN)
  Receive Date: 20240319
  Receipt Date: 20240319
  Transmission Date: 20240410
  Serious: Yes (Other)
  Sender: FDA-Public Use
  Company Number: CN-PFIZER INC-202400067317

PATIENT
  Age: 93 Year
  Sex: Male
  Weight: 65 kg

DRUGS (2)
  1. SOLU-MEDROL [Suspect]
     Active Substance: METHYLPREDNISOLONE SODIUM SUCCINATE
     Dosage: 60 MG
  2. SODIUM CHLORIDE [Concomitant]
     Active Substance: SODIUM CHLORIDE
     Dosage: 250 ML

REACTIONS (2)
  - Chest discomfort [Recovering/Resolving]
  - Vomiting [Recovered/Resolved]

NARRATIVE: CASE EVENT DATE: 20240312
